FAERS Safety Report 4536814-7 (Version None)
Quarter: 2004Q4

REPORT INFORMATION
  Report Type: 
  Country: None (occurrence: None)
  Receive Date: 20041220
  Receipt Date: 20041213
  Transmission Date: 20050328
  Serious: Yes (Death)
  Sender: FDA-Public Use
  Company Number: VISP-NO-0412S-0504

PATIENT
  Age: 89 Year
  Sex: Male

DRUGS (6)
  1. VISIPAQUE [Suspect]
     Indication: ARTERIAL BYPASS OPERATION
     Dosage: 100 ML, SINGLE DOSE, I.A.
     Route: 013
     Dates: start: 20030821, end: 20030821
  2. VISIPAQUE [Suspect]
     Indication: ARTERIAL BYPASS OPERATION
     Dosage: 100 ML, SINGLE DOSE, I.A.
     Route: 013
     Dates: start: 20030822, end: 20030822
  3. ACETAMINOPHEN [Concomitant]
  4. HEPARIN (HEPARINE) [Concomitant]
  5. CEFAMANDOLE NAFATE [Concomitant]
  6. BUFLOMEDIL HYDROCHLORIDE (FONZYLANE) [Concomitant]

REACTIONS (1)
  - RENAL FAILURE ACUTE [None]
